FAERS Safety Report 6583375-7 (Version None)
Quarter: 2010Q1

REPORT INFORMATION
  Report Type: 
  Country: None (occurrence: None)
  Receive Date: 20100216
  Receipt Date: 20091126
  Transmission Date: 20100710
  Serious: Yes (Hospitalization)
  Sender: FDA-Public Use
  Company Number: JP-SANOFI-AVENTIS-2009SA005466

PATIENT
  Age: 78 Year
  Sex: Female

DRUGS (9)
  1. PLAVIX [Suspect]
     Indication: LACUNAR INFARCTION
     Route: 048
     Dates: start: 20071017
  2. AMLODIPINE [Concomitant]
     Route: 048
  3. NU-LOTAN [Concomitant]
     Route: 048
  4. CALCITRIOL [Concomitant]
     Route: 048
  5. AZULFIDINE [Concomitant]
     Route: 048
  6. PREDNISOLONE [Concomitant]
     Route: 048
  7. LOXONIN [Concomitant]
     Route: 048
  8. SELBEX [Concomitant]
     Route: 048
  9. TAKEPRON [Concomitant]
     Route: 048

REACTIONS (1)
  - ADVERSE EVENT [None]
